FAERS Safety Report 25100480 (Version 1)
Quarter: 2025Q1

REPORT INFORMATION
  Report Type: Spontaneous
  Country: GB (occurrence: GB)
  Receive Date: 20250320
  Receipt Date: 20250320
  Transmission Date: 20250408
  Serious: Yes (Hospitalization, Disabling, Other)
  Sender: ABBVIE
  Company Number: None

PATIENT
  Sex: Male

DRUGS (1)
  1. CITALOPRAM [Suspect]
     Active Substance: CITALOPRAM
     Indication: Product used for unknown indication
     Route: 065

REACTIONS (7)
  - Cognitive disorder [Not Recovered/Not Resolved]
  - Anhedonia [Not Recovered/Not Resolved]
  - Amnesia [Recovered/Resolved with Sequelae]
  - Electric shock sensation [Not Recovered/Not Resolved]
  - Sexual dysfunction [Not Recovered/Not Resolved]
  - Emotional poverty [Not Recovered/Not Resolved]
  - Small fibre neuropathy [Not Recovered/Not Resolved]
